FAERS Safety Report 7361570-7 (Version None)
Quarter: 2011Q1

REPORT INFORMATION
  Report Type: 
  Country: None (occurrence: None)
  Receive Date: 20110318
  Receipt Date: 20110315
  Transmission Date: 20110831
  Serious: Yes (Hospitalization, Other)
  Sender: FDA-Public Use
  Company Number: BR-ABBOTT-11P-020-0712047-00

PATIENT
  Sex: Male
  Weight: 90 kg

DRUGS (8)
  1. HUMIRA [Suspect]
     Indication: PSORIATIC ARTHROPATHY
     Route: 058
     Dates: start: 20091215
  2. SPIRONOLACTONE [Concomitant]
     Indication: HYPERTENSION
     Route: 048
  3. TELMISARTAN [Concomitant]
     Indication: HYPERTENSION
     Route: 048
  4. PHENPROCOUMON [Concomitant]
     Indication: HYPERTENSION
     Dosage: 0.5 PER DAY
     Route: 048
     Dates: start: 20101201
  5. PREDNISOLONE [Concomitant]
     Indication: PAIN
     Route: 048
  6. ATENOLOL [Concomitant]
     Indication: HYPERTENSION
     Route: 048
  7. DEFLAZACORT [Concomitant]
     Indication: PAIN
     Route: 048
  8. BUMETANIDE [Concomitant]
     Indication: HYPERTENSION
     Route: 048

REACTIONS (5)
  - FATIGUE [None]
  - ALOPECIA [None]
  - BURNING SENSATION [None]
  - TRANSIENT ISCHAEMIC ATTACK [None]
  - MYALGIA [None]
